FAERS Safety Report 4855853-X (Version None)
Quarter: 2005Q4

REPORT INFORMATION
  Report Type: 
  Country: None (occurrence: None)
  Receive Date: 20051215
  Receipt Date: 20051215
  Transmission Date: 20060501
  Serious: Yes (Life-Threatening, Hospitalization)
  Sender: FDA-Public Use
  Company Number: None

PATIENT
  Age: 88 Year
  Sex: Female
  Weight: 43.0917 kg

DRUGS (2)
  1. LEVAQUIN [Suspect]
     Dosage: 500 MG DAILY PO
     Route: 048
     Dates: start: 20051117, end: 20051117
  2. LYRICA [Suspect]
     Dosage: 50 MG TID PO
     Route: 048

REACTIONS (3)
  - ANAPHYLACTOID REACTION [None]
  - DRUG INTERACTION [None]
  - HYPERSENSITIVITY [None]
